FAERS Safety Report 6748657-4 (Version None)
Quarter: 2010Q2

REPORT INFORMATION
  Report Type: 
  Country: None (occurrence: None)
  Receive Date: 20100601
  Receipt Date: 20100520
  Transmission Date: 20101027
  Serious: Yes (Other)
  Sender: FDA-Public Use
  Company Number: GB-JNJFOC-20100509098

PATIENT
  Age: 19 Year
  Sex: Male
  Weight: 50 kg

DRUGS (4)
  1. REMICADE [Suspect]
     Indication: CROHN'S DISEASE
     Route: 042
  2. AZATHIOPRINE SODIUM [Concomitant]
     Indication: CROHN'S DISEASE
     Route: 048
  3. LANSOPRAZOLE [Concomitant]
     Route: 048
  4. STEROIDS NOS [Concomitant]
     Route: 048

REACTIONS (1)
  - CHEST PAIN [None]
